FAERS Safety Report 23377250 (Version 1)
Quarter: 2024Q1

REPORT INFORMATION
  Report Type: Spontaneous
  Country: IT (occurrence: IT)
  Receive Date: 20240108
  Receipt Date: 20240108
  Transmission Date: 20240409
  Serious: Yes (Hospitalization)
  Sender: FDA-Public Use
  Company Number: IT-MINISAL02-963253

PATIENT
  Age: 27 Year
  Sex: Male

DRUGS (1)
  1. IBUPROFEN [Suspect]
     Active Substance: IBUPROFEN
     Indication: Headache
     Dosage: 400 MILLIGRAM, TWO TIMES A DAY
     Route: 048
     Dates: start: 20231101, end: 20231109

REACTIONS (2)
  - Abdominal pain upper [Recovered/Resolved]
  - Hypertransaminasaemia [Unknown]

NARRATIVE: CASE EVENT DATE: 20231109
